FAERS Safety Report 24903028 (Version 3)
Quarter: 2025Q3

REPORT INFORMATION
  Report Type: Spontaneous
  Country: US (occurrence: US)
  Receive Date: 20250130
  Receipt Date: 20250803
  Transmission Date: 20251020
  Serious: Yes (Other)
  Sender: ALEXION PHARMACEUTICALS
  Company Number: US-AstraZeneca-CH-00793772AM

PATIENT
  Age: 69 Year
  Sex: Female
  Weight: 87.089 kg

DRUGS (2)
  1. TAGRISSO [Suspect]
     Active Substance: OSIMERTINIB
  2. Nutrafol [Concomitant]
     Route: 065

REACTIONS (10)
  - Syncope [Recovered/Resolved]
  - Vomiting [Recovered/Resolved]
  - Neoplasm [Unknown]
  - Heart rate decreased [Unknown]
  - Aspartate aminotransferase increased [Unknown]
  - Hypovitaminosis [Unknown]
  - Mean platelet volume increased [Unknown]
  - Alanine aminotransferase increased [Unknown]
  - Vitamin D decreased [Unknown]
  - Eosinophil count decreased [Unknown]

NARRATIVE: CASE EVENT DATE: 20250101
